FAERS Safety Report 24172391 (Version 1)
Quarter: 2024Q3

REPORT INFORMATION
  Report Type: Spontaneous
  Country: US (occurrence: None)
  Receive Date: 20240804
  Receipt Date: 20240804
  Transmission Date: 20241016
  Serious: No
  Sender: Public
  Company Number: None

PATIENT
  Age: 70 Year
  Sex: Male
  Weight: 126 kg

DRUGS (4)
  1. LUPRON DEPOT [Suspect]
     Active Substance: LEUPROLIDE ACETATE
     Indication: Prostate cancer
     Dosage: OTHER FREQUENCY : EVERY 3 MONTHS;?
     Route: 030
     Dates: start: 20240429
  2. VENLAFAXINE [Concomitant]
  3. irbersartine [Concomitant]
  4. Mounjaro [Concomitant]

REACTIONS (2)
  - Injection site swelling [None]
  - Injection site pain [None]

NARRATIVE: CASE EVENT DATE: 20240730
